FAERS Safety Report 16152699 (Version 2)
Quarter: 2019Q2

REPORT INFORMATION
  Report Type: Report from Study
  Country: GB (occurrence: GB)
  Receive Date: 20190403
  Receipt Date: 20190411
  Transmission Date: 20190711
  Serious: Yes (Death, Other)
  Sender: FDA-Public Use
  Company Number: GB-TAKEDA-2019TUS017439

PATIENT
  Age: 79 Year
  Sex: Female

DRUGS (5)
  1. IXAZOMIB [Suspect]
     Active Substance: IXAZOMIB
     Dosage: 2.3 MILLIGRAM, UNK
     Route: 048
     Dates: start: 20190323
  2. LENALIDOMIDE [Concomitant]
     Active Substance: LENALIDOMIDE
     Dosage: 15 MILLIGRAM, UNK
     Dates: start: 20190323, end: 20190328
  3. IXAZOMIB [Suspect]
     Active Substance: IXAZOMIB
     Indication: PLASMA CELL MYELOMA
     Dosage: 3 MILLIGRAM, UNK
     Route: 048
     Dates: start: 20190216
  4. DEXAMETHASONE. [Suspect]
     Active Substance: DEXAMETHASONE
     Indication: PLASMA CELL MYELOMA
     Dosage: 20 MILLIGRAM, UNK
     Route: 065
     Dates: start: 20190316
  5. LENALIDOMIDE [Concomitant]
     Active Substance: LENALIDOMIDE
     Dosage: 25 MILLIGRAM, UNK
     Dates: start: 20190216

REACTIONS (2)
  - Diarrhoea [Recovered/Resolved]
  - Acute myocardial infarction [Fatal]

NARRATIVE: CASE EVENT DATE: 20190328
